FAERS Safety Report 17633021 (Version 1)
Quarter: 2020Q2

REPORT INFORMATION
  Report Type: Spontaneous
  Country: US (occurrence: US)
  Receive Date: 20200406
  Receipt Date: 20200406
  Transmission Date: 20200713
  Serious: Yes (Other)
  Sender: FDA-Public Use
  Company Number: US-SA-2020SA083246

PATIENT
  Age: 32 Year
  Sex: Male

DRUGS (1)
  1. CABLIVI [Suspect]
     Active Substance: CAPLACIZUMAB-YHDP
     Indication: THROMBOTIC MICROANGIOPATHY
     Dosage: 11 MG, QD
     Route: 058
     Dates: start: 20200312

REACTIONS (4)
  - Epistaxis [Unknown]
  - Haemoglobin decreased [Unknown]
  - Pollakiuria [Unknown]
  - Haematochezia [Unknown]

NARRATIVE: CASE EVENT DATE: 202003
